FAERS Safety Report 4411441-0 (Version None)
Quarter: 2004Q2

REPORT INFORMATION
  Report Type: 
  Country: None (occurrence: None)
  Receive Date: 20040630
  Receipt Date: 20040524
  Transmission Date: 20050107
  Serious: No
  Sender: FDA-Public Use
  Company Number: 04P-163-0261832-00

PATIENT
  Age: 55 Year
  Sex: Female
  Weight: 90.7194 kg

DRUGS (8)
  1. HUMIRA [Suspect]
     Indication: RHEUMATOID ARTHRITIS
     Dosage: 40 MG, 1 IN 2 WK, SUBCUTANEOUS
     Route: 058
     Dates: start: 20040201
  2. CALCIUM [Concomitant]
  3. CELECOXIB [Concomitant]
  4. PARACETAMOL [Concomitant]
  5. METHOTREXATE [Concomitant]
  6. PROPACET 100 [Concomitant]
  7. ATORVASTATIN CALCIUM [Concomitant]
  8. MULTI-VITAMINS [Concomitant]

REACTIONS (2)
  - JOINT SWELLING [None]
  - URINARY TRACT INFECTION [None]
